FAERS Safety Report 7099295-8 (Version None)
Quarter: 2010Q4

REPORT INFORMATION
  Report Type: 
  Country: None (occurrence: None)
  Receive Date: 20101112
  Receipt Date: 20101110
  Transmission Date: 20110411
  Serious: Yes (Death, Other)
  Sender: FDA-Public Use
  Company Number: PHHY2010JP72712

PATIENT
  Age: 61 Year
  Sex: Male

DRUGS (3)
  1. NEORAL [Suspect]
     Indication: RENAL TRANSPLANT
     Dosage: 100MG/DAY
     Route: 048
  2. MYCOPHENOLATE MOFETIL [Suspect]
     Route: 050
  3. PREDNISOLONE [Suspect]
     Indication: RENAL TRANSPLANT
     Route: 048

REACTIONS (6)
  - BASAL CELL CARCINOMA [None]
  - FAILURE TO ANASTOMOSE [None]
  - HEPATIC CANCER METASTATIC [None]
  - PANCREATIC CARCINOMA [None]
  - SURGERY [None]
  - TUMOUR EXCISION [None]
